FAERS Safety Report 9745621 (Version 1)
Quarter: 2013Q4

REPORT INFORMATION
  Report Type: Spontaneous
  Country: CA (occurrence: CA)
  Receive Date: 20131211
  Receipt Date: 20131211
  Transmission Date: 20140711
  Serious: Yes (Other)
  Sender: FDA-Public Use
  Company Number: CA-ASTRAZENECA-2013SE89458

PATIENT
  Age: 73 Year
  Sex: Male
  Weight: 90.7 kg

DRUGS (16)
  1. APO-ESOMEPRAZOLE [Suspect]
     Dosage: GENERIC, 20 MG DAILY
     Route: 048
  2. SEROQUEL XR [Suspect]
     Route: 048
  3. AMIODARONE [Concomitant]
  4. BISOPROLOL [Concomitant]
  5. DIGOXIN [Concomitant]
  6. FUROSEMIDE [Concomitant]
  7. LORAZEPAM [Concomitant]
  8. NITROGLYCERIN [Concomitant]
  9. NITROGLYCERIN [Concomitant]
  10. PLAVIX [Concomitant]
  11. PRAVASTATIN SODIUM [Concomitant]
  12. RAMIPRIL [Concomitant]
  13. SPIRONOLACTONE [Concomitant]
  14. TAMSULOSIN CR [Concomitant]
  15. TRIAMCINOLONE [Concomitant]
  16. WARFARIN [Concomitant]

REACTIONS (6)
  - Angina pectoris [Recovered/Resolved]
  - Condition aggravated [Recovered/Resolved]
  - Oropharyngeal pain [Recovered/Resolved]
  - Abdominal pain upper [Recovered/Resolved]
  - Oral candidiasis [Recovered/Resolved]
  - Fatigue [Recovered/Resolved]
